FAERS Safety Report 16415475 (Version 4)
Quarter: 2020Q1

REPORT INFORMATION
  Report Type: Report from Study
  Country: PT (occurrence: PT)
  Receive Date: 20190611
  Receipt Date: 20200107
  Transmission Date: 20200409
  Serious: Yes (Hospitalization)
  Sender: FDA-Public Use
  Company Number: PT-EISAI MEDICAL RESEARCH-EC-2019-057475

PATIENT
  Age: 74 Year
  Sex: Male
  Weight: 71.3 kg

DRUGS (10)
  1. LERCANIDIPIN [Concomitant]
     Active Substance: LERCANIDIPINE
  2. LINAGLIPTINE [Concomitant]
     Active Substance: LINAGLIPTIN
  3. EVEROLIMUS. [Suspect]
     Active Substance: EVEROLIMUS
     Indication: RENAL CELL CARCINOMA
     Dates: start: 20190408, end: 20190426
  4. IRON [Concomitant]
     Active Substance: IRON
  5. PREGABALIN. [Concomitant]
     Active Substance: PREGABALIN
  6. FENTANYL. [Concomitant]
     Active Substance: FENTANYL
  7. LENVATINIB [Suspect]
     Active Substance: LENVATINIB
     Route: 048
     Dates: start: 20190430, end: 20190521
  8. DILTIAZEM CHLORIDRATE [Concomitant]
  9. EVEROLIMUS. [Suspect]
     Active Substance: EVEROLIMUS
     Dates: start: 20190430, end: 20190521
  10. LENVATINIB [Suspect]
     Active Substance: LENVATINIB
     Indication: RENAL CELL CARCINOMA
     Route: 048
     Dates: start: 20190408, end: 20190426

REACTIONS (1)
  - Cardiac failure congestive [Recovered/Resolved]

NARRATIVE: CASE EVENT DATE: 20190604
